FAERS Safety Report 14411037 (Version 1)
Quarter: 2018Q1

REPORT INFORMATION
  Report Type: Spontaneous
  Country: US (occurrence: US)
  Receive Date: 20180119
  Receipt Date: 20180119
  Transmission Date: 20180509
  Serious: No
  Sender: FDA-Public Use
  Company Number: US-JNJFOC-20180110396

PATIENT
  Age: 61 Year
  Sex: Female
  Weight: 99.79 kg

DRUGS (6)
  1. STELARA [Suspect]
     Active Substance: USTEKINUMAB
     Indication: PSORIASIS
     Route: 058
     Dates: start: 201605
  2. STELARA [Suspect]
     Active Substance: USTEKINUMAB
     Indication: PSORIATIC ARTHROPATHY
     Route: 058
     Dates: start: 201605
  3. TANZEUM [Concomitant]
     Active Substance: ALBIGLUTIDE
     Route: 058
  4. HUMULIN R [Concomitant]
     Active Substance: INSULIN HUMAN
     Route: 058
  5. ALPHA LIPOIC ACID [Concomitant]
     Active Substance: .ALPHA.-LIPOIC ACID
     Route: 065
  6. LORATADINE. [Concomitant]
     Active Substance: LORATADINE
     Route: 065

REACTIONS (1)
  - Dehydration [Unknown]

NARRATIVE: CASE EVENT DATE: 20180108
